FAERS Safety Report 8518826-1 (Version None)
Quarter: 2012Q3

REPORT INFORMATION
  Report Type: 
  Country: None (occurrence: None)
  Receive Date: 20120718
  Receipt Date: 20120716
  Transmission Date: 20120928
  Serious: Yes (Other)
  Sender: FDA-Public Use
  Company Number: PHEH2012US012525

PATIENT
  Sex: Male
  Weight: 54.875 kg

DRUGS (5)
  1. NEXIUM [Concomitant]
  2. CARBAMAZEPINE [Suspect]
     Indication: CONVULSION
     Dosage: 0.5 DF, 8QD
     Route: 048
  3. TEGRETOL [Suspect]
     Dosage: 100 MG, UNK
  4. ATIVAN [Concomitant]
     Indication: AGITATION
     Dosage: 0.5 MG, 1 TO 2 TABLETS DAILY
     Route: 048
  5. ANTIBIOTICS [Concomitant]

REACTIONS (5)
  - WRONG TECHNIQUE IN DRUG USAGE PROCESS [None]
  - MALAISE [None]
  - BLOOD SODIUM DECREASED [None]
  - CONVULSION [None]
  - NAUSEA [None]
